FAERS Safety Report 19947403 (Version 1)
Quarter: 2021Q4

REPORT INFORMATION
  Report Type: Spontaneous
  Country: US (occurrence: US)
  Receive Date: 20211013
  Receipt Date: 20211013
  Transmission Date: 20220304
  Serious: No
  Sender: FDA-Public Use
  Company Number: US-TARO-2021TAR00267

PATIENT

DRUGS (1)
  1. CLOTRIMAZOLE [Suspect]
     Active Substance: CLOTRIMAZOLE
     Indication: Tinea infection
     Dosage: BID, APPLY TO AFFECTED AREA
     Route: 061
     Dates: start: 20210306

REACTIONS (1)
  - Condition aggravated [Not Recovered/Not Resolved]
